FAERS Safety Report 19077898 (Version 1)
Quarter: 2021Q1

REPORT INFORMATION
  Report Type: Spontaneous
  Country: US (occurrence: US)
  Receive Date: 20210331
  Receipt Date: 20210331
  Transmission Date: 20210420
  Serious: Yes (Hospitalization)
  Sender: FDA-Public Use
  Company Number: None

PATIENT
  Age: 64 Year
  Sex: Male
  Weight: 86.7 kg

DRUGS (1)
  1. BAMLANIVIMAB 700MG [Suspect]
     Active Substance: BAMLANIVIMAB
     Indication: COVID-19
     Dosage: ?          OTHER ROUTE:IV?
     Dates: start: 20210305

REACTIONS (9)
  - Asthenia [None]
  - Acute respiratory failure [None]
  - Acute kidney injury [None]
  - Dyspnoea [None]
  - Cough [None]
  - Hypoxia [None]
  - Diarrhoea [None]
  - Confusional state [None]
  - COVID-19 pneumonia [None]

NARRATIVE: CASE EVENT DATE: 20210309
